FAERS Safety Report 7163700-9 (Version None)
Quarter: 2010Q4

REPORT INFORMATION
  Report Type: 
  Country: None (occurrence: None)
  Receive Date: 20101215
  Receipt Date: 20100528
  Transmission Date: 20110411
  Serious: Yes (Other)
  Sender: FDA-Public Use
  Company Number: US-PFIZER INC-2010051860

PATIENT
  Sex: Female
  Weight: 68.027 kg

DRUGS (4)
  1. LYRICA [Suspect]
     Indication: NEUROPATHY PERIPHERAL
     Dosage: 400 MG, 4X/DAY
     Route: 048
     Dates: start: 20050101, end: 20100421
  2. CYMBALTA [Concomitant]
     Indication: NEUROPATHY PERIPHERAL
     Dosage: UNK
  3. CYCLOBENZAPRINE [Concomitant]
     Dosage: 15 MG, 1X/DAY AT BEDTIME
  4. LUNESTA [Concomitant]
     Dosage: 1 MG AT BEDTIME

REACTIONS (8)
  - BLOOD CHOLESTEROL INCREASED [None]
  - BLOOD THYROID STIMULATING HORMONE INCREASED [None]
  - ERYTHEMA [None]
  - HYPERTENSION [None]
  - NERVE COMPRESSION [None]
  - OEDEMA PERIPHERAL [None]
  - SLEEP DISORDER [None]
  - WEIGHT INCREASED [None]
